FAERS Safety Report 5787362-8 (Version None)
Quarter: 2008Q2

REPORT INFORMATION
  Report Type: 
  Country: None (occurrence: None)
  Receive Date: 20080623
  Receipt Date: 20080623
  Transmission Date: 20081010
  Serious: Yes (Hospitalization)
  Sender: FDA-Public Use
  Company Number: None

PATIENT
  Age: 49 Year
  Sex: Female
  Weight: 121.3 kg

DRUGS (17)
  1. VANCOMYCIN [Suspect]
     Indication: POST PROCEDURAL PNEUMONIA
     Dosage: 1.5 GM Q12H IV BOLUS
     Route: 040
     Dates: start: 20071029, end: 20071105
  2. ZOSYN [Suspect]
     Indication: POST PROCEDURAL PNEUMONIA
     Dosage: 4.5 GM Q6H IV BOLUS
     Route: 040
     Dates: start: 20071029, end: 20071105
  3. ALBUTEROL SULFATE AND IPRATROPIUM BROMIDE [Concomitant]
  4. AMLODIPINE [Concomitant]
  5. BENAZEPRIL HYDROCHLORIDE [Concomitant]
  6. DOCUSATE-SENNA [Concomitant]
  7. FLUTICASONE-SALMETEROL [Concomitant]
  8. FUROSEMIDE [Concomitant]
  9. IVERMECTIN [Concomitant]
  10. LEVOFLOXACIN [Concomitant]
  11. METHYLPREDNISOLONE [Concomitant]
  12. METOPROLOL SUCCINATE [Concomitant]
  13. MICAFUNGIN [Concomitant]
  14. MONTELEUKAST [Concomitant]
  15. PANTOPRAZOLE SODIUM [Concomitant]
  16. SERTRALINE [Concomitant]
  17. TIOTROPIUM [Concomitant]

REACTIONS (1)
  - NEPHROPATHY TOXIC [None]
